FAERS Safety Report 8476032-3 (Version None)
Quarter: 2012Q2

REPORT INFORMATION
  Report Type: 
  Country: None (occurrence: None)
  Receive Date: 20120628
  Receipt Date: 20120615
  Transmission Date: 20120825
  Serious: Yes (Death, Hospitalization)
  Sender: FDA-Public Use
  Company Number: ES-CELGENEUS-144-21880-12062451

PATIENT
  Sex: Male

DRUGS (17)
  1. DEXAMETHASONE [Suspect]
     Indication: MULTIPLE MYELOMA
     Dosage: 20 MILLIGRAM
     Route: 048
     Dates: start: 20120309
  2. FUROSEMIDE [Concomitant]
     Dosage: 80 MILLIGRAM
     Route: 048
     Dates: end: 20120614
  3. CALCIUM SANDOZ [Concomitant]
     Indication: CHRONIC OBSTRUCTIVE PULMONARY DISEASE
     Route: 048
     Dates: end: 20120614
  4. EPO [Concomitant]
     Route: 065
  5. OMEPRAZOLE [Concomitant]
     Indication: PROPHYLAXIS
     Dosage: 20 MILLIGRAM
     Route: 048
     Dates: end: 20120614
  6. SIMVASTATIN [Concomitant]
     Indication: HYPOLIPIDAEMIA
     Dosage: 20 MILLIGRAM
     Route: 048
     Dates: end: 20120614
  7. METFORMIN HCL [Concomitant]
     Indication: DIABETES MELLITUS
     Dosage: 850 MILLIGRAM
     Route: 048
     Dates: end: 20120614
  8. ALLOPURINOL [Concomitant]
     Indication: HYPERURICAEMIA
     Dosage: 40 MILLIGRAM
     Route: 048
     Dates: end: 20120614
  9. ALLOPURINOL [Concomitant]
     Dosage: 300 UNKNOWN
     Route: 048
     Dates: end: 20120614
  10. SIMVASTATIN [Concomitant]
     Dosage: 300 UNKNOWN
     Route: 048
     Dates: end: 20120614
  11. REVLIMID [Suspect]
     Dosage: 25 MILLIGRAM
     Route: 048
     Dates: start: 20120602, end: 20120613
  12. DEXAMETHASONE [Suspect]
     Dosage: 20 MILLIGRAM
     Route: 048
     Dates: start: 20120602, end: 20120613
  13. RILAST [Concomitant]
     Indication: CHRONIC OBSTRUCTIVE PULMONARY DISEASE
     Route: 055
     Dates: end: 20120614
  14. REVLIMID [Suspect]
     Indication: MULTIPLE MYELOMA
     Dosage: 25 MILLIGRAM
     Route: 048
     Dates: start: 20120309
  15. TERBASMIN [Concomitant]
     Indication: CHRONIC OBSTRUCTIVE PULMONARY DISEASE
     Route: 055
     Dates: end: 20120614
  16. SPIRIVA [Concomitant]
     Indication: CHRONIC OBSTRUCTIVE PULMONARY DISEASE
     Route: 055
     Dates: end: 20120614
  17. LYRICA [Concomitant]
     Dosage: 450 MILLIGRAM
     Route: 048
     Dates: end: 20120614

REACTIONS (3)
  - PNEUMONIA [None]
  - NEUTROPENIA [None]
  - SEPTIC SHOCK [None]
